FAERS Safety Report 10175531 (Version 1)
Quarter: 2014Q2

REPORT INFORMATION
  Report Type: Spontaneous
  Country: CA (occurrence: CA)
  Receive Date: 20140516
  Receipt Date: 20140516
  Transmission Date: 20141212
  Serious: Yes (Other)
  Sender: FDA-Public Use
  Company Number: CA-ROCHE-1401590

PATIENT
  Sex: Male

DRUGS (11)
  1. RITUXAN [Suspect]
     Indication: PRODUCT USED FOR UNKNOWN INDICATION
     Route: 065
  2. AMITRIPTYLINE [Suspect]
     Indication: PRODUCT USED FOR UNKNOWN INDICATION
     Route: 065
  3. NAPROXEN [Suspect]
     Indication: PRODUCT USED FOR UNKNOWN INDICATION
     Route: 065
  4. QUININE [Suspect]
     Indication: PRODUCT USED FOR UNKNOWN INDICATION
     Route: 065
  5. RENEDIL [Suspect]
     Indication: PRODUCT USED FOR UNKNOWN INDICATION
     Route: 065
  6. ALENDRONATE [Concomitant]
  7. AZATHIOPRINE [Concomitant]
     Route: 065
  8. HYDROMORPH CONTIN [Concomitant]
     Route: 065
  9. HYDROMORPHONE [Concomitant]
     Route: 065
  10. PREDNISONE [Concomitant]
     Route: 065
  11. TECTA [Concomitant]
     Route: 065

REACTIONS (1)
  - Cerebral haemorrhage [Unknown]
